FAERS Safety Report 23084916 (Version 2)
Quarter: 2023Q4

REPORT INFORMATION
  Report Type: Spontaneous
  Country: DE (occurrence: DE)
  Receive Date: 20231019
  Receipt Date: 20231106
  Transmission Date: 20240110
  Serious: Yes (Other)
  Sender: FDA-Public Use
  Company Number: DE-Gedeon Richter Plc.-2023_GR_009793

PATIENT
  Age: 48 Year
  Sex: Female

DRUGS (2)
  1. ESTRADIOL\NORETHINDRONE ACETATE\RELUGOLIX [Suspect]
     Active Substance: ESTRADIOL\NORETHINDRONE ACETATE\RELUGOLIX
     Indication: Uterine leiomyoma
     Dosage: 1 TAB, QD
     Route: 048
     Dates: start: 202307, end: 20230928
  2. IRON [Concomitant]
     Active Substance: IRON
     Indication: Nutritional supplementation
     Dosage: UNK
     Route: 065

REACTIONS (5)
  - Condition aggravated [Recovered/Resolved]
  - Heavy menstrual bleeding [Recovered/Resolved]
  - Iron deficiency anaemia [Unknown]
  - Condition aggravated [Unknown]
  - Vaginal haemorrhage [Recovered/Resolved]
